FAERS Safety Report 12603163 (Version 1)
Quarter: 2016Q3

REPORT INFORMATION
  Report Type: Spontaneous
  Country: US (occurrence: US)
  Receive Date: 20160728
  Receipt Date: 20160728
  Transmission Date: 20161109
  Serious: Yes (Other)
  Sender: FDA-Public Use
  Company Number: US-CTI_01720_2015

PATIENT
  Age: 72 Year
  Sex: Female

DRUGS (4)
  1. ZYFLO CR [Suspect]
     Active Substance: ZILEUTON
     Indication: PNEUMONIA
     Dates: start: 20150516
  2. ZYFLO CR [Suspect]
     Active Substance: ZILEUTON
     Indication: RESPIRATORY DISORDER
     Dates: start: 20150516
  3. QVAR [Concomitant]
     Active Substance: BECLOMETHASONE DIPROPIONATE
     Dosage: DF
  4. NEBULIZED MEDICATIONS [Concomitant]
     Dosage: DF

REACTIONS (1)
  - Hypersensitivity [Recovering/Resolving]

NARRATIVE: CASE EVENT DATE: 20150524
